FAERS Safety Report 8005298-9 (Version None)
Quarter: 2011Q4

REPORT INFORMATION
  Report Type: 
  Country: None (occurrence: None)
  Receive Date: 20111223
  Receipt Date: 20111216
  Transmission Date: 20120403
  Serious: Yes (Other)
  Sender: FDA-Public Use
  Company Number: US-JNJFOC-20111208335

PATIENT
  Sex: Female
  Weight: 82.1 kg

DRUGS (5)
  1. DURAGESIC-100 [Suspect]
     Indication: PAIN
     Dosage: 100 UG/HR PLUS 100 UG/HR PLUS 100 UG/HR
     Route: 062
  2. FENTANYL-100 [Suspect]
     Indication: PAIN
     Dosage: 100 UG/HR PLUS 100 UG/HR PLUS 100 UG.HR.  END DATE IS DEC
     Route: 062
  3. FUROSEMIDE [Concomitant]
     Indication: OEDEMA
     Route: 048
     Dates: start: 20030101
  4. DURAGESIC-100 [Suspect]
     Dosage: 100 UG/HR PLUS 100 UG/HR
     Route: 062
  5. KLOR-CON [Concomitant]
     Indication: NUTRITIONAL SUPPORT
     Route: 048
     Dates: start: 20030101

REACTIONS (13)
  - WEIGHT DECREASED [None]
  - BEDRIDDEN [None]
  - BLOOD PRESSURE INCREASED [None]
  - INSOMNIA [None]
  - APPLICATION SITE PRURITUS [None]
  - ANAEMIA [None]
  - PRODUCT QUALITY ISSUE [None]
  - DEPRESSION [None]
  - PAIN [None]
  - BODY HEIGHT DECREASED [None]
  - MALAISE [None]
  - OSTEOPOROSIS [None]
  - TREATMENT NONCOMPLIANCE [None]
